FAERS Safety Report 4599288-6 (Version None)
Quarter: 2005Q1

REPORT INFORMATION
  Report Type: 
  Country: None (occurrence: None)
  Receive Date: 20050302
  Receipt Date: 20050302
  Transmission Date: 20050727
  Serious: No
  Sender: FDA-Public Use
  Company Number: None

PATIENT
  Age: 62 Year
  Sex: Female

DRUGS (4)
  1. CLIMARA [Suspect]
     Dosage: APPLY WEEKLY AS DIRECTED
     Route: 062
     Dates: start: 20040522
  2. CLIMARA [Suspect]
     Dosage: APPLY WEEKLY AS DIRECTED
     Route: 062
     Dates: start: 20040817
  3. CLIMARA [Suspect]
     Dosage: APPLY WEEKLY AS DIRECTED
     Route: 062
     Dates: start: 20041031
  4. CLIMARA [Suspect]
     Dosage: APPLY WEEKLY AS DIRECTED
     Route: 062
     Dates: start: 20050112

REACTIONS (5)
  - BLISTER [None]
  - DISCOMFORT [None]
  - PAIN [None]
  - PHARMACEUTICAL PRODUCT COMPLAINT [None]
  - RASH ERYTHEMATOUS [None]
